FAERS Safety Report 8080209-9 (Version None)
Quarter: 2012Q1

REPORT INFORMATION
  Report Type: 
  Country: None (occurrence: None)
  Receive Date: 20120130
  Receipt Date: 20120126
  Transmission Date: 20120608
  Serious: Yes (Hospitalization)
  Sender: FDA-Public Use
  Company Number: US-TEVA-319450USA

PATIENT
  Sex: Female
  Weight: 72.64 kg

DRUGS (5)
  1. NUVIGIL [Suspect]
     Indication: MULTIPLE SCLEROSIS
     Dosage: QD
     Route: 048
     Dates: start: 20111001
  2. GLATIRAMER ACETATE [Concomitant]
     Indication: MULTIPLE SCLEROSIS
     Route: 058
  3. CETIRIZINE HCL [Concomitant]
     Indication: HYPERSENSITIVITY
     Route: 048
  4. ALPRAZOLAM [Concomitant]
     Indication: ANXIETY
     Dosage: .5 MILLIGRAM;
     Route: 048
  5. BACLOFEN [Concomitant]
     Indication: MUSCLE SPASMS
     Dosage: 40 MILLIGRAM;
     Route: 048

REACTIONS (9)
  - LETHARGY [None]
  - FLUID RETENTION [None]
  - ABDOMINAL DISTENSION [None]
  - OFF LABEL USE [None]
  - WEIGHT INCREASED [None]
  - BOWEL MOVEMENT IRREGULARITY [None]
  - HAEMATOCHEZIA [None]
  - DIVERTICULITIS [None]
  - DRUG INEFFECTIVE [None]
